FAERS Safety Report 15124825 (Version 2)
Quarter: 2019Q3

REPORT INFORMATION
  Report Type: Spontaneous
  Country: FR (occurrence: FR)
  Receive Date: 20180710
  Receipt Date: 20190801
  Transmission Date: 20191004
  Serious: Yes (Hospitalization)
  Sender: FDA-Public Use
  Company Number: FR-009507513-1807FRA000834

PATIENT
  Age: 56 Year
  Sex: Female

DRUGS (6)
  1. MEPRONIZINE [Suspect]
     Active Substance: ACEPROMETAZINE MALEATE\MEPROBAMATE
     Indication: PRODUCT USED FOR UNKNOWN INDICATION
     Dosage: TABLET
     Route: 065
  2. ABILIFY [Suspect]
     Active Substance: ARIPIPRAZOLE
     Indication: SCHIZOAFFECTIVE DISORDER
     Dosage: 15 MG, UNK
     Route: 048
     Dates: end: 20090320
  3. ABILIFY [Suspect]
     Active Substance: ARIPIPRAZOLE
     Dosage: 10 MG, INCREASED TO 15 MG DAILY
     Route: 048
     Dates: start: 2009, end: 20090320
  4. SOLIAN [Suspect]
     Active Substance: AMISULPRIDE
     Indication: PRODUCT USED FOR UNKNOWN INDICATION
     Dosage: 2 TABLETS/DAY
     Route: 065
  5. NORSET [Suspect]
     Active Substance: MIRTAZAPINE
     Dosage: 15 MG, QD 2 TAB/DAY
     Route: 065
  6. SOLIAN [Suspect]
     Active Substance: AMISULPRIDE
     Dosage: 2 TABLETS/DAY
     Route: 065

REACTIONS (2)
  - Urinary retention [Not Recovered/Not Resolved]
  - Acute kidney injury [Recovered/Resolved]
